FAERS Safety Report 19088168 (Version 2)
Quarter: 2021Q3

REPORT INFORMATION
  Report Type: Spontaneous
  Country: RU (occurrence: RU)
  Receive Date: 20210402
  Receipt Date: 20210709
  Transmission Date: 20211014
  Serious: Yes (Death, Other)
  Sender: FDA-Public Use
  Company Number: RU-BRISTOL-MYERS SQUIBB COMPANY-BMS-2021-031509

PATIENT
  Age: 56 Year
  Sex: Female

DRUGS (2)
  1. IPILIMUMAB [Suspect]
     Active Substance: IPILIMUMAB
     Indication: METASTATIC RENAL CELL CARCINOMA
     Dosage: 1MG / KG (80MG)
     Route: 005
     Dates: start: 2020
  2. NIVOLUMAB [Suspect]
     Active Substance: NIVOLUMAB
     Indication: METASTATIC RENAL CELL CARCINOMA
     Dosage: 3MG / KG 240ML
     Route: 065
     Dates: start: 2020

REACTIONS (4)
  - COVID-19 [Fatal]
  - Immune-mediated hepatitis [Unknown]
  - Diabetes mellitus [Unknown]
  - Myasthenia gravis [Unknown]

NARRATIVE: CASE EVENT DATE: 2020
